FAERS Safety Report 7668803-8 (Version None)
Quarter: 2011Q3

REPORT INFORMATION
  Report Type: 
  Country: None (occurrence: None)
  Receive Date: 20110808
  Receipt Date: 20110802
  Transmission Date: 20111222
  Serious: Yes (Hospitalization)
  Sender: FDA-Public Use
  Company Number: JP-SANOFI-AVENTIS-2011SA003888

PATIENT
  Age: 76 Year
  Sex: Male

DRUGS (4)
  1. HUMALOG [Suspect]
     Dosage: 2-4 UNITS/DAY
     Route: 058
  2. HUMALOG [Suspect]
     Route: 058
     Dates: start: 20101224, end: 20101224
  3. LANTUS [Suspect]
     Route: 058
  4. ITANGO PEN [Suspect]

REACTIONS (3)
  - HYPOGLYCAEMIA [None]
  - DIABETIC KETOACIDOSIS [None]
  - WRONG DRUG ADMINISTERED [None]
